FAERS Safety Report 15879794 (Version 1)
Quarter: 2019Q1

REPORT INFORMATION
  Report Type: Spontaneous
  Country: US (occurrence: US)
  Receive Date: 20190104
  Receipt Date: 20190104
  Transmission Date: 20190417
  Serious: No
  Sender: FDA-Public Use
  Company Number: None

PATIENT
  Age: 71 Year
  Sex: Male

DRUGS (1)
  1. SUTENT [Suspect]
     Active Substance: SUNITINIB MALATE
     Route: 048
     Dates: start: 201808

REACTIONS (5)
  - Insomnia [None]
  - Decreased appetite [None]
  - Fatigue [None]
  - Somnolence [None]
  - Weight decreased [None]

NARRATIVE: CASE EVENT DATE: 20190103
